FAERS Safety Report 13818227 (Version 1)
Quarter: 2017Q3

REPORT INFORMATION
  Report Type: Spontaneous
  Country: US (occurrence: US)
  Receive Date: 20170731
  Receipt Date: 20170731
  Transmission Date: 20171127
  Serious: Yes (Hospitalization)
  Sender: FDA-Public Use
  Company Number: US-ROCHE-660962

PATIENT
  Age: 53 Year
  Sex: Female

DRUGS (4)
  1. NEXIUM [Concomitant]
     Active Substance: ESOMEPRAZOLE MAGNESIUM
     Dosage: DRUG REPORTED: NEXIUM AVISTA
     Route: 065
  2. LIALDA [Concomitant]
     Active Substance: MESALAMINE
     Route: 065
  3. BONIVA [Suspect]
     Active Substance: IBANDRONATE SODIUM
     Indication: OSTEOPENIA
     Dosage: DOSE: 3 MG/ML, FREQUENCY: X 1; OTHER INDICATION: OSTEOPOROSIS
     Route: 042
     Dates: start: 20090930, end: 20090930
  4. LIPOICIN [Concomitant]
     Dosage: DRUG REPORTED: LIPOSINE
     Route: 065

REACTIONS (6)
  - Peripheral swelling [Recovered/Resolved]
  - Injection site pain [Not Recovered/Not Resolved]
  - Injection site extravasation [Not Recovered/Not Resolved]
  - Injection site pain [Recovered/Resolved]
  - Injection site swelling [Not Recovered/Not Resolved]
  - Injection site swelling [Not Recovered/Not Resolved]

NARRATIVE: CASE EVENT DATE: 20090930
